FAERS Safety Report 8159465-4 (Version None)
Quarter: 2012Q1

REPORT INFORMATION
  Report Type: 
  Country: None (occurrence: None)
  Receive Date: 20120223
  Receipt Date: 20120217
  Transmission Date: 20120608
  Serious: Yes (Death)
  Sender: FDA-Public Use
  Company Number: JP-BAXTER-2011BH032461

PATIENT
  Sex: Male
  Weight: 98 kg

DRUGS (2)
  1. ADVATE [Suspect]
     Indication: HAEMOPHILIA
     Route: 042
     Dates: start: 20110905
  2. ADVATE [Suspect]
     Indication: HAEMARTHROSIS
     Route: 042
     Dates: start: 20110905

REACTIONS (1)
  - DEATH [None]
